FAERS Safety Report 23602502 (Version 1)
Quarter: 2024Q1

REPORT INFORMATION
  Report Type: Spontaneous
  Country: FR (occurrence: FR)
  Receive Date: 20240306
  Receipt Date: 20240306
  Transmission Date: 20240410
  Serious: Yes (Hospitalization)
  Sender: FDA-Public Use
  Company Number: FR-MYLANLABS-2024M1020176

PATIENT
  Sex: Female

DRUGS (8)
  1. VERAPAMIL HYDROCHLORIDE [Suspect]
     Active Substance: VERAPAMIL HYDROCHLORIDE
     Indication: Burning sensation
     Dosage: 240 MILLIGRAM, QD
     Route: 065
  2. ENTRESTO [Concomitant]
     Active Substance: SACUBITRIL\VALSARTAN
     Indication: Pulmonary oedema
     Dosage: 1 DOSAGE FORM, BID
     Route: 065
     Dates: start: 202211
  3. ENTRESTO [Concomitant]
     Active Substance: SACUBITRIL\VALSARTAN
     Indication: Burning sensation
  4. CARVEDILOL [Concomitant]
     Active Substance: CARVEDILOL
     Indication: Pulmonary oedema
     Dosage: 1 DOSAGE FORM, BID (IN THE MORNING AND IN THE EVENING)
     Route: 065
  5. EPLERENONE [Concomitant]
     Active Substance: EPLERENONE
     Indication: Pulmonary oedema
     Dosage: 1 DOSAGE FORM, QD (EPLERENONE 25, ONE IN THE MORNING)
     Route: 065
  6. EPLERENONE [Concomitant]
     Active Substance: EPLERENONE
     Indication: Burning sensation
  7. FUROSEMIDE [Concomitant]
     Active Substance: FUROSEMIDE
     Indication: Pulmonary oedema
     Dosage: 1 DOSAGE FORM, QD (LASILIX 40 (IN THE EVENING))
     Route: 065
  8. XARELTO [Concomitant]
     Active Substance: RIVAROXABAN
     Dosage: 1 DOSAGE FORM, BID (XARELTO 15 (ONE IN THE MORNING AND ONE IN THE EVENING))
     Route: 065

REACTIONS (3)
  - Malaise [Unknown]
  - Accident [Unknown]
  - Heart rate decreased [Unknown]
